FAERS Safety Report 6128008-9 (Version None)
Quarter: 2009Q1

REPORT INFORMATION
  Report Type: 
  Country: None (occurrence: None)
  Receive Date: 20090320
  Receipt Date: 20090320
  Transmission Date: 20090719
  Serious: Yes (Other)
  Sender: FDA-Public Use
  Company Number: None

PATIENT
  Sex: Male
  Weight: 88.905 kg

DRUGS (1)
  1. LEVITRA [Suspect]
     Indication: ERECTILE DYSFUNCTION
     Dosage: 20MG  1 PER DAY PO
     Route: 048
     Dates: start: 20090104, end: 20090201

REACTIONS (2)
  - MYODESOPSIA [None]
  - PHOTOPSIA [None]
